FAERS Safety Report 6064358-2 (Version None)
Quarter: 2009Q1

REPORT INFORMATION
  Report Type: 
  Country: None (occurrence: None)
  Receive Date: 20090203
  Receipt Date: 20090203
  Transmission Date: 20090719
  Serious: Yes (Hospitalization)
  Sender: FDA-Public Use
  Company Number: None

PATIENT
  Age: 59 Year
  Sex: Male
  Weight: 127.0072 kg

DRUGS (1)
  1. SORAFENIB 200MG TABLETS [Suspect]
     Indication: NEOPLASM
     Dosage: 200MG TABS #2 TABS BID PO
     Route: 048
     Dates: start: 20090109, end: 20090125

REACTIONS (6)
  - BLOOD CREATININE INCREASED [None]
  - BLOOD SODIUM DECREASED [None]
  - COUGH [None]
  - FEBRILE NEUTROPENIA [None]
  - NAUSEA [None]
  - RASH [None]
